FAERS Safety Report 14609138 (Version 1)
Quarter: 2018Q1

REPORT INFORMATION
  Report Type: Spontaneous
  Country: US (occurrence: CA)
  Receive Date: 20180307
  Receipt Date: 20180307
  Transmission Date: 20180509
  Serious: No
  Sender: FDA-Public Use
  Company Number: US-ABBVIE-18S-163-2233634-00

PATIENT
  Age: 56 Year
  Sex: Male

DRUGS (5)
  1. CRESTOR [Concomitant]
     Active Substance: ROSUVASTATIN CALCIUM
     Indication: PRODUCT USED FOR UNKNOWN INDICATION
  2. MAVIK [Concomitant]
     Active Substance: TRANDOLAPRIL
     Indication: PRODUCT USED FOR UNKNOWN INDICATION
  3. PROPECIA [Concomitant]
     Active Substance: FINASTERIDE
     Indication: PRODUCT USED FOR UNKNOWN INDICATION
  4. ANDROGEL [Suspect]
     Active Substance: TESTOSTERONE
     Indication: PAIN
     Dosage: 5 G, QD
     Route: 061
     Dates: start: 2015
  5. ANDROGEL [Suspect]
     Active Substance: TESTOSTERONE
     Indication: ARTHRALGIA
     Dosage: 7.5 G, UNK (AFTER 6 MONTHS)
     Route: 061

REACTIONS (2)
  - No adverse event [Unknown]
  - Off label use [Unknown]
